FAERS Safety Report 9503069 (Version 2)
Quarter: 2013Q4

REPORT INFORMATION
  Report Type: Spontaneous
  Country: US (occurrence: US)
  Receive Date: 20130906
  Receipt Date: 20131105
  Transmission Date: 20140711
  Serious: Yes (Hospitalization, Other)
  Sender: FDA-Public Use
  Company Number: US-PFIZER INC-2013256126

PATIENT
  Age: 47 Year
  Sex: Female
  Weight: 97.96 kg

DRUGS (6)
  1. PRISTIQ [Suspect]
     Indication: ANXIETY
     Dosage: 50 MG, 1X/DAY
     Route: 048
     Dates: start: 20090427, end: 2011
  2. PRISTIQ [Suspect]
     Indication: DEPRESSION
     Dosage: 50 MG, 1X/DAY
     Route: 048
     Dates: end: 201301
  3. LOPRESSOR [Concomitant]
     Indication: CORONARY ARTERY DISEASE
     Dosage: 12.5 MG, DAILY
     Dates: start: 201301
  4. PRAVASTATIN [Concomitant]
     Indication: CORONARY ARTERY DISEASE
     Dosage: 20 MG, DAILY
     Dates: start: 201301
  5. XANAX [Concomitant]
     Indication: ANXIETY
     Dosage: 0.5 MG ALMOST EVERY DAY AS NEEDED
  6. VITAMIN B12 [Concomitant]
     Indication: VITAMIN B12 DEFICIENCY

REACTIONS (4)
  - Pulmonary thrombosis [Not Recovered/Not Resolved]
  - Thrombotic thrombocytopenic purpura [Recovered/Resolved]
  - Acute myocardial infarction [Unknown]
  - Off label use [Unknown]
